FAERS Safety Report 7345035-4 (Version None)
Quarter: 2011Q1

REPORT INFORMATION
  Report Type: 
  Country: None (occurrence: None)
  Receive Date: 20110310
  Receipt Date: 20110301
  Transmission Date: 20110831
  Serious: Yes (Hospitalization)
  Sender: FDA-Public Use
  Company Number: IT-MPIJNJ-2010-06145

PATIENT

DRUGS (5)
  1. VELCADE [Suspect]
     Indication: MULTIPLE MYELOMA
     Dosage: 1.3 MG/M2, CYCLIC
     Route: 042
     Dates: start: 20081206, end: 20090128
  2. MELPHALAN [Suspect]
     Indication: MULTIPLE MYELOMA
     Dosage: 9 MG/M2, CYCLIC
     Route: 048
  3. THALIDOMIDE [Suspect]
     Indication: MULTIPLE MYELOMA
     Dosage: 50 MG, QD
  4. PREDNISONE [Suspect]
     Indication: MULTIPLE MYELOMA
     Dosage: 60 MG/M2, CYCLIC
     Route: 048
  5. ASPIRIN [Concomitant]
     Indication: PROPHYLAXIS

REACTIONS (1)
  - THROMBOSIS [None]
